FAERS Safety Report 5303467-X (Version None)
Quarter: 2007Q2

REPORT INFORMATION
  Report Type: 
  Country: None (occurrence: None)
  Receive Date: 20070420
  Receipt Date: 20070412
  Transmission Date: 20071010
  Serious: Yes (Hospitalization, Other)
  Sender: FDA-Public Use
  Company Number: 2007AP02218

PATIENT
  Age: 52 Year
  Sex: Female

DRUGS (8)
  1. CRESTOR [Suspect]
     Indication: HYPERLIPIDAEMIA
     Route: 048
     Dates: start: 20070305, end: 20070315
  2. AMARYL [Suspect]
     Route: 048
     Dates: end: 20070315
  3. NORVASC [Suspect]
     Route: 048
     Dates: end: 20070315
  4. PRERAN [Suspect]
     Route: 048
     Dates: end: 20070315
  5. ALOSENN [Suspect]
     Route: 048
     Dates: end: 20070315
  6. DOGMATYL [Suspect]
     Route: 048
     Dates: end: 20070315
  7. MEVALOTIN [Concomitant]
     Dates: end: 20070305
  8. AGENTS USED FOR COMMON COLD [Concomitant]

REACTIONS (5)
  - ANOREXIA [None]
  - CONVULSION [None]
  - HYPONATRAEMIA [None]
  - MUSCLE SPASMS [None]
  - NECK PAIN [None]
